FAERS Safety Report 10415425 (Version 1)
Quarter: 2014Q3

REPORT INFORMATION
  Report Type: Spontaneous
  Country: FR (occurrence: None)
  Receive Date: 20140826
  Receipt Date: 20140826
  Transmission Date: 20150326
  Serious: Yes (Other)
  Sender: FDA-Public Use
  Company Number: DEP_02245_2014

PATIENT
  Age: 85 Year
  Sex: Female

DRUGS (2)
  1. GABAPENTIN (GABAPENTIN) 300 MG [Suspect]
     Active Substance: GABAPENTIN
     Indication: OFF LABEL USE
  2. GABAPENTIN (GABAPENTIN) 300 MG [Suspect]
     Active Substance: GABAPENTIN
     Indication: PARTIAL SEIZURES

REACTIONS (4)
  - Memory impairment [None]
  - Encephalopathy [None]
  - Cognitive disorder [None]
  - Altered state of consciousness [None]
